FAERS Safety Report 17705296 (Version 1)
Quarter: 2020Q2

REPORT INFORMATION
  Report Type: Spontaneous
  Country: US (occurrence: US)
  Receive Date: 20200424
  Receipt Date: 20200424
  Transmission Date: 20200714
  Serious: Yes (Other)
  Sender: FDA-Public Use
  Company Number: None

PATIENT
  Age: 30 Year
  Sex: Male

DRUGS (1)
  1. ELETRIPTAN. [Suspect]
     Active Substance: ELETRIPTAN
     Indication: MIGRAINE
     Dosage: ?          OTHER FREQUENCY:ONSET, MAY REPEAT;?
     Route: 048
     Dates: start: 20200312, end: 20200320

REACTIONS (3)
  - Dyspraxia [None]
  - Dysgraphia [None]
  - Tremor [None]

NARRATIVE: CASE EVENT DATE: 20200320
